FAERS Safety Report 4325264-4 (Version None)
Quarter: 2004Q1

REPORT INFORMATION
  Report Type: 
  Country: None (occurrence: None)
  Receive Date: 20040324
  Receipt Date: 20040302
  Transmission Date: 20041129
  Serious: Yes (Death, Other)
  Sender: FDA-Public Use
  Company Number: JP_031202366

PATIENT
  Age: 13 Year
  Sex: Female

DRUGS (8)
  1. ONCOVIN [Suspect]
     Indication: PRIMITIVE NEUROECTODERMAL TUMOUR
  2. DOXORUBICIN HCL [Concomitant]
  3. CYCLOPHOSPHAMIDE [Concomitant]
  4. IFOSFAMIDE [Concomitant]
  5. ETOPOSIDE [Concomitant]
  6. PIRARUBICIN [Concomitant]
  7. MELPHALAN [Concomitant]
  8. RADIOTHERAPY [Concomitant]

REACTIONS (7)
  - BONE MARROW DEPRESSION [None]
  - LEUKAEMIA [None]
  - PANCYTOPENIA [None]
  - PULMONARY HAEMORRHAGE [None]
  - SEPSIS [None]
  - STEM CELL TRANSPLANT [None]
  - THERAPY NON-RESPONDER [None]
